FAERS Safety Report 9245207 (Version 1)
Quarter: 2013Q1

REPORT INFORMATION
  Report Type: Spontaneous
  Country: US (occurrence: None)
  Receive Date: 20121130
  Receipt Date: 20121130
  Transmission Date: 20140127
  Serious: Yes (Other)
  Sender: FDA-Public Use
  Company Number: 338960

PATIENT
  Age: 57 Year
  Sex: Male
  Weight: 117.9 kg

DRUGS (8)
  1. NOVOLOG [Suspect]
     Indication: TYPE 2 DIABETES MELLITUS
     Dosage: SLIDING SCALE
     Route: 058
     Dates: start: 2007
  2. LANTUS [Suspect]
     Route: 058
  3. XANAX (ALPRAZOLAM) [Concomitant]
  4. PRISTIQ (DESVENLAFAXINE SUCCINATE) [Concomitant]
  5. PLAVIX (CLOPIDOGREL BISULFATE) [Concomitant]
  6. HYZAAR (HYDROCHLOROTHIAZIDE, LOSARTAN POTASSIUM) [Concomitant]
  7. METFORMIN (METFORMIN) [Concomitant]
  8. OMEGA 3 FISH OIL (FISH OIL) [Concomitant]

REACTIONS (3)
  - Blood glucose increased [None]
  - Burning sensation [None]
  - Condition aggravated [None]
